FAERS Safety Report 19925149 (Version 5)
Quarter: 2022Q1

REPORT INFORMATION
  Report Type: Report from Study
  Country: PA (occurrence: PA)
  Receive Date: 20211006
  Receipt Date: 20220322
  Transmission Date: 20220424
  Serious: Yes (Other)
  Sender: FDA-Public Use
  Company Number: NVSC2021PA195188

PATIENT
  Age: 51 Year
  Sex: Female

DRUGS (5)
  1. KISQALI [Suspect]
     Active Substance: RIBOCICLIB
     Indication: Breast cancer metastatic
     Dosage: 600 MG, QD (3 TABLET DAILY)
     Route: 048
     Dates: start: 202101, end: 20210816
  2. KISQALI [Suspect]
     Active Substance: RIBOCICLIB
     Dosage: 600 MG, TID (ONE IN THE MORNING, ONE AT MIDDAY, AND ONE IN THE AFTERNOON)
     Route: 048
     Dates: start: 202102, end: 20210816
  3. KISQALI [Suspect]
     Active Substance: RIBOCICLIB
     Dosage: 600 MG, QD
     Route: 048
     Dates: start: 202102, end: 202111
  4. ANASTROZOLE [Suspect]
     Active Substance: ANASTROZOLE
     Indication: Product used for unknown indication
     Dosage: UNK
     Route: 065
  5. ZOMETA [Suspect]
     Active Substance: ZOLEDRONIC ACID
     Indication: Product used for unknown indication
     Dosage: UNK
     Route: 065

REACTIONS (18)
  - Bone cancer [Unknown]
  - Second primary malignancy [Unknown]
  - Breast cancer metastatic [Unknown]
  - Malignant neoplasm progression [Unknown]
  - Mass [Unknown]
  - Pain [Unknown]
  - Headache [Recovering/Resolving]
  - Musculoskeletal chest pain [Recovering/Resolving]
  - Bone pain [Recovering/Resolving]
  - Pyrexia [Unknown]
  - Chills [Unknown]
  - Breast enlargement [Unknown]
  - Back pain [Unknown]
  - Breast mass [Unknown]
  - Neoplasm [Recovering/Resolving]
  - Fatigue [Unknown]
  - Asthenia [Unknown]
  - Inappropriate schedule of product administration [Unknown]

NARRATIVE: CASE EVENT DATE: 20210922
